FAERS Safety Report 5912412-5 (Version None)
Quarter: 2008Q4

REPORT INFORMATION
  Report Type: 
  Country: None (occurrence: None)
  Receive Date: 20081008
  Receipt Date: 20080930
  Transmission Date: 20090506
  Serious: Yes (Other)
  Sender: FDA-Public Use
  Company Number: JP-WATSON-2008-05852

PATIENT
  Age: 49 Year
  Sex: Male
  Weight: 68 kg

DRUGS (7)
  1. ETOPOSIDE (WATSON LABORATORIES) [Suspect]
     Indication: LYMPHOMA
     Dosage: 40 MG/M2 ON DAYS 2-5
     Dates: start: 20080101
  2. METHYLPREDNISOLONE [Suspect]
     Indication: ANTIINFLAMMATORY THERAPY
     Dosage: 500 MG ON DAY 1-6
  3. WARFARIN SODIUM [Suspect]
     Indication: PULMONARY EMBOLISM
     Dosage: 3 MG, DAILY
     Route: 048
  4. WARFARIN SODIUM [Suspect]
     Indication: DEEP VEIN THROMBOSIS
  5. RITUXIMAB [Suspect]
     Indication: LYMPHOMA
     Dosage: 375 MG/M2 ON DAY 1
  6. CISPLATIN [Suspect]
     Indication: LYMPHOMA
     Dosage: 25 MCGCM2 ON DAY 2-5
  7. CYTARABINE [Suspect]
     Indication: LYMPHOMA
     Dosage: 2 G PER M2 ON DAY 6

REACTIONS (2)
  - INTERNATIONAL NORMALISED RATIO INCREASED [None]
  - POTENTIATING DRUG INTERACTION [None]
